FAERS Safety Report 15739841 (Version 1)
Quarter: 2018Q4

REPORT INFORMATION
  Report Type: Spontaneous
  Country: RU (occurrence: RU)
  Receive Date: 20181219
  Receipt Date: 20181219
  Transmission Date: 20190205
  Serious: Yes (Other)
  Sender: FDA-Public Use
  Company Number: RU-BAYER-2018-232287

PATIENT
  Age: 37 Year
  Sex: Female

DRUGS (1)
  1. QLAIRA [Suspect]
     Active Substance: DIENOGEST\ESTRADIOL VALERATE
     Indication: PREMATURE MENOPAUSE
     Dosage: UNK
     Route: 048
     Dates: start: 2015, end: 201806

REACTIONS (3)
  - Product use in unapproved indication [None]
  - Invasive lobular breast carcinoma [None]
  - Off label use [None]

NARRATIVE: CASE EVENT DATE: 2015
